FAERS Safety Report 20624552 (Version 1)
Quarter: 2022Q1

REPORT INFORMATION
  Report Type: Spontaneous
  Country: CN (occurrence: CN)
  Receive Date: 20220322
  Receipt Date: 20220322
  Transmission Date: 20220423
  Serious: Yes (Other)
  Sender: FDA-Public Use
  Company Number: CN-BAXTER-2022BAX006141

PATIENT
  Age: 36 Year
  Sex: Female
  Weight: 51 kg

DRUGS (5)
  1. CYCLOPHOSPHAMIDE [Suspect]
     Active Substance: CYCLOPHOSPHAMIDE
     Indication: Breast cancer female
     Dosage: CYCLOPHOSPHAMIDE FOR INJECTION (ENDOXAN CTX) 830 MG + NS 40ML
     Route: 042
     Dates: start: 20220113, end: 20220113
  2. SODIUM CHLORIDE [Suspect]
     Active Substance: SODIUM CHLORIDE
     Indication: Medication dilution
     Dosage: CYCLOPHOSPHAMIDE FOR INJECTION (ENDOXAN CTX) 830 MG + NS 40ML
     Route: 042
     Dates: start: 20220113, end: 20220113
  3. SODIUM CHLORIDE [Suspect]
     Active Substance: SODIUM CHLORIDE
     Dosage: EPIRUBICIN HYDROCHLORIDE FOR INJECTION (PHARMORUBICIN) 124 MG + NS 100ML
     Route: 041
     Dates: start: 20220113, end: 20220113
  4. EPIRUBICIN [Suspect]
     Active Substance: EPIRUBICIN
     Indication: Breast cancer female
     Dosage: EPIRUBICIN HYDROCHLORIDE FOR INJECTION (PHARMORUBICIN) 124 MG + NS 100ML
     Route: 041
     Dates: start: 20220113, end: 20220113
  5. Aiduo [Concomitant]
     Indication: Product used for unknown indication
     Route: 058
     Dates: start: 20220115

REACTIONS (2)
  - White blood cell count decreased [Recovering/Resolving]
  - Agranulocytosis [Recovering/Resolving]

NARRATIVE: CASE EVENT DATE: 20220120
